FAERS Safety Report 4378556-7 (Version None)
Quarter: 2004Q2

REPORT INFORMATION
  Report Type: 
  Country: None (occurrence: None)
  Receive Date: 20040609
  Receipt Date: 20040603
  Transmission Date: 20050107
  Serious: Yes (Disabling)
  Sender: FDA-Public Use
  Company Number: HQ8195408NOV2001

PATIENT
  Age: 50 Year
  Sex: Male

DRUGS (2)
  1. DIMETAPP [Suspect]
     Indication: NASOPHARYNGITIS
     Dosage: ORAL
     Route: 048
     Dates: start: 19950101
  2. ALKA-SELTZER PLUS COLD (ACETYLSALICYLIC  ACID/CHLORPHENAMINE MALEATE/P [Suspect]
     Indication: NASOPHARYNGITIS
     Dosage: ORAL
     Route: 048
     Dates: start: 19950101

REACTIONS (2)
  - HAEMORRHAGIC STROKE [None]
  - POLYTRAUMATISM [None]
